FAERS Safety Report 13929603 (Version 1)
Quarter: 2017Q3

REPORT INFORMATION
  Report Type: Spontaneous
  Country: FR (occurrence: FR)
  Receive Date: 20170901
  Receipt Date: 20170901
  Transmission Date: 20171127
  Serious: Yes (Hospitalization)
  Sender: FDA-Public Use
  Company Number: FR-ACCORD-057813

PATIENT
  Age: 66 Year
  Sex: Female

DRUGS (7)
  1. FLUOROURACIL ACCORD [Suspect]
     Active Substance: FLUOROURACIL
     Indication: BREAST CANCER
     Dosage: STRENGTH: 50 MG/ML,??DOSE: 950 MG EVERY 3 WEEKS
     Route: 042
     Dates: start: 20170620
  2. PRIMPERAN [Concomitant]
     Active Substance: METOCLOPRAMIDE HYDROCHLORIDE
     Dosage: IN THE FIRST THREE DAYS OF THE CURE
  3. EMEND [Concomitant]
     Active Substance: APREPITANT
     Dosage: IN THE FIRST THREE DAYS OF THE CURE
  4. ONDANSETRON [Concomitant]
     Active Substance: ONDANSETRON
     Dosage: 8 GM IN THE EVENING OF THE CURE
  5. EPIRUBICIN MEDAC [Suspect]
     Active Substance: EPIRUBICIN HYDROCHLORIDE
     Indication: BREAST CANCER
     Dosage: STRENGTH: 2 MG/ML,??DOSE: 194 MG EVERY 3 WEEKS
     Route: 042
     Dates: start: 20170620
  6. ENDOXAN [Suspect]
     Active Substance: CYCLOPHOSPHAMIDE
     Indication: BREAST CANCER
     Dosage: DOSE: 960 MG EVERY 3 WEEKS
     Route: 042
     Dates: start: 20170620
  7. SOLUPRED [Concomitant]
     Active Substance: PREDNISOLONE
     Dosage: FIRST THREE DAYS OF THE CURE

REACTIONS (2)
  - Delusion [Recovered/Resolved]
  - Eye pain [Unknown]

NARRATIVE: CASE EVENT DATE: 20170708
